FAERS Safety Report 10693122 (Version 2)
Quarter: 2015Q1

REPORT INFORMATION
  Report Type: Spontaneous
  Country: JP (occurrence: JP)
  Receive Date: 20150106
  Receipt Date: 20150106
  Transmission Date: 20150720
  Serious: Yes (Other)
  Sender: FDA-Public Use
  Company Number: JP-JNJFOC-20141200361

PATIENT
  Age: 80 Year
  Sex: Male

DRUGS (4)
  1. ALEVIATIN [Concomitant]
     Active Substance: PHENYTOIN SODIUM
     Route: 050
  2. LANIRAPID [Concomitant]
     Active Substance: METILDIGOXIN
     Route: 050
  3. XARELTO [Suspect]
     Active Substance: RIVAROXABAN
     Indication: THROMBOSIS PROPHYLAXIS
     Route: 048
     Dates: start: 20130918, end: 20141126
  4. DEPAKENE [Concomitant]
     Active Substance: VALPROIC ACID
     Route: 050

REACTIONS (2)
  - Melaena [Recovered/Resolved]
  - Peptic ulcer [Recovered/Resolved]

NARRATIVE: CASE EVENT DATE: 20141124
